FAERS Safety Report 22621956 (Version 1)
Quarter: 2023Q2

REPORT INFORMATION
  Report Type: Spontaneous
  Country: US (occurrence: US)
  Receive Date: 20230620
  Receipt Date: 20230620
  Transmission Date: 20230722
  Serious: No
  Sender: FDA-Public Use
  Company Number: US-MYLANLABS-2023M1060965

PATIENT
  Sex: Female

DRUGS (1)
  1. SEMGLEE (INSULIN GLARGINE-YFGN) [Suspect]
     Active Substance: INSULIN GLARGINE-YFGN
     Indication: Type 1 diabetes mellitus
     Dosage: UNK (45 UNITS IN THE MORNING AND 30 UNITS AT NIGHT)
     Route: 058

REACTIONS (10)
  - Malaise [Unknown]
  - Weight abnormal [Unknown]
  - Stress [Unknown]
  - Wrong technique in product usage process [Unknown]
  - Therapeutic product effect incomplete [Unknown]
  - Device occlusion [Unknown]
  - Device delivery system issue [Unknown]
  - Needle issue [Unknown]
  - Device breakage [Unknown]
  - Device issue [Unknown]
